FAERS Safety Report 5256295-8 (Version None)
Quarter: 2007Q1

REPORT INFORMATION
  Report Type: 
  Country: None (occurrence: None)
  Receive Date: 20061204
  Receipt Date: 20060912
  Transmission Date: 20070707
  Serious: No
  Sender: FDA-Public Use
  Company Number: 2006-BP-09706BP

PATIENT
  Sex: Female

DRUGS (7)
  1. SPIRIVA [Suspect]
     Indication: ASTHMA
     Dosage: 18 MCG (18 MCG, 1 IN 1 D), IH
     Route: 055
     Dates: start: 20060813
  2. SPIRIVA [Suspect]
     Indication: CHRONIC OBSTRUCTIVE PULMONARY DISEASE
     Dosage: 18 MCG (18 MCG, 1 IN 1 D), IH
     Route: 055
     Dates: start: 20060813
  3. ADVAIR (SERETIDE  /01420901/) [Concomitant]
  4. COMBIVENT (COMBIVENT /01261001/) [Concomitant]
  5. DECONAMINE (PSEUDOEPHEDRINE HYDROCHLORIDE) [Concomitant]
  6. ALBUTEROL [Concomitant]
  7. LOVASTATIN [Concomitant]

REACTIONS (4)
  - FATIGUE [None]
  - MUSCULOSKELETAL CHEST PAIN [None]
  - PAINFUL RESPIRATION [None]
  - SOMNOLENCE [None]
